FAERS Safety Report 5884509-X (Version None)
Quarter: 2008Q3

REPORT INFORMATION
  Report Type: 
  Country: None (occurrence: None)
  Receive Date: 20080916
  Receipt Date: 20080908
  Transmission Date: 20090109
  Serious: Yes (Other)
  Sender: FDA-Public Use
  Company Number: SE-JNJFOC-20080901776

PATIENT
  Sex: Male

DRUGS (2)
  1. CONCERTA [Suspect]
     Indication: DRUG USE FOR UNKNOWN INDICATION
  2. VICKS [Interacting]
     Indication: COUGH
     Route: 048

REACTIONS (3)
  - DIPLOPIA [None]
  - DRUG INTERACTION [None]
  - HALLUCINATION [None]
